FAERS Safety Report 24453534 (Version 2)
Quarter: 2024Q4

REPORT INFORMATION
  Report Type: Spontaneous
  Country: TW (occurrence: TW)
  Receive Date: 20241017
  Receipt Date: 20241018
  Transmission Date: 20250114
  Serious: No
  Sender: ROCHE
  Company Number: TW-ROCHE-3349662

PATIENT
  Age: 72 Year
  Sex: Male

DRUGS (14)
  1. RITUXIMAB [Suspect]
     Active Substance: RITUXIMAB
     Indication: Diffuse large B-cell lymphoma
     Route: 065
     Dates: start: 20211227, end: 20211227
  2. RITUXIMAB [Suspect]
     Active Substance: RITUXIMAB
     Route: 065
     Dates: start: 20220125, end: 20220929
  3. RITUXIMAB [Suspect]
     Active Substance: RITUXIMAB
     Dosage: R-BENDAMUSTINE
     Route: 065
     Dates: start: 20221111, end: 20221201
  4. RITUXIMAB [Suspect]
     Active Substance: RITUXIMAB
     Dosage: R-GEPS
     Route: 065
     Dates: start: 20221214, end: 20230426
  5. CYCLOPHOSPHAMIDE [Suspect]
     Active Substance: CYCLOPHOSPHAMIDE
     Indication: Diffuse large B-cell lymphoma
     Route: 065
     Dates: start: 20211227, end: 20211227
  6. ETOPOSIDE [Suspect]
     Active Substance: ETOPOSIDE
     Indication: Diffuse large B-cell lymphoma
     Route: 065
     Dates: start: 20211227, end: 20211227
  7. ETOPOSIDE [Suspect]
     Active Substance: ETOPOSIDE
     Dosage: R-GEPS
     Route: 065
     Dates: start: 20221214, end: 20230426
  8. PREDNISONE [Suspect]
     Active Substance: PREDNISONE
     Indication: Diffuse large B-cell lymphoma
     Route: 065
     Dates: start: 20211227, end: 20211227
  9. PREDNISONE [Suspect]
     Active Substance: PREDNISONE
     Dosage: R-GEPS
     Route: 065
     Dates: start: 20221214, end: 20230426
  10. BENDAMUSTINE [Suspect]
     Active Substance: BENDAMUSTINE
     Indication: Diffuse large B-cell lymphoma
     Dosage: R-BENDAMUSTINE
     Route: 065
     Dates: start: 20220125, end: 20220929
  11. BENDAMUSTINE [Suspect]
     Active Substance: BENDAMUSTINE
     Dosage: R-BENDAMUSTINE
     Route: 065
     Dates: start: 20221111, end: 20221201
  12. PEGASPARGASE [Suspect]
     Active Substance: PEGASPARGASE
     Indication: Diffuse large B-cell lymphoma
     Route: 065
     Dates: start: 20221214, end: 20230426
  13. GEMCITABINE [Suspect]
     Active Substance: GEMCITABINE
     Indication: Diffuse large B-cell lymphoma
     Dosage: R-GEPS
     Route: 065
     Dates: start: 20221214, end: 20230426
  14. LENALIDOMIDE [Suspect]
     Active Substance: LENALIDOMIDE
     Indication: Diffuse large B-cell lymphoma
     Dosage: R-GEPS
     Route: 065
     Dates: start: 20230426, end: 20230506

REACTIONS (3)
  - COVID-19 [Recovered/Resolved]
  - Disease progression [Unknown]
  - Blood lactate dehydrogenase increased [Unknown]

NARRATIVE: CASE EVENT DATE: 20230201
